FAERS Safety Report 13642868 (Version 1)
Quarter: 2017Q2

REPORT INFORMATION
  Report Type: Spontaneous
  Country: SE (occurrence: SE)
  Receive Date: 20170612
  Receipt Date: 20170612
  Transmission Date: 20170830
  Serious: Yes (Other)
  Sender: FDA-Public Use
  Company Number: SE-TEVA-775032ISR

PATIENT
  Age: 61 Year
  Sex: Female

DRUGS (2)
  1. TROMBYL [Concomitant]
     Active Substance: ASPIRIN
  2. BISOPROLOL TEVA [Suspect]
     Active Substance: BISOPROLOL

REACTIONS (1)
  - Systemic lupus erythematosus [Not Recovered/Not Resolved]
